FAERS Safety Report 7864286-3 (Version None)
Quarter: 2011Q4

REPORT INFORMATION
  Report Type: 
  Country: None (occurrence: None)
  Receive Date: 20111028
  Receipt Date: 20110221
  Transmission Date: 20120403
  Serious: No
  Sender: FDA-Public Use
  Company Number: US-GLAXOSMITHKLINE-A0914667A

PATIENT
  Age: 59 Year
  Sex: Male

DRUGS (2)
  1. SEREVENT [Suspect]
     Indication: ASTHMA
     Dosage: 1PUFF PER DAY
     Route: 055
     Dates: start: 19950101, end: 20110130
  2. LIPITOR [Concomitant]

REACTIONS (2)
  - PRODUCT QUALITY ISSUE [None]
  - HEART RATE IRREGULAR [None]
